FAERS Safety Report 7529886-9 (Version None)
Quarter: 2011Q2

REPORT INFORMATION
  Report Type: 
  Country: None (occurrence: None)
  Receive Date: 20110607
  Receipt Date: 20110602
  Transmission Date: 20111010
  Serious: Yes (Life-Threatening, Hospitalization)
  Sender: FDA-Public Use
  Company Number: JP-BRISTOL-MYERS SQUIBB COMPANY-15805666

PATIENT
  Age: 86 Year
  Sex: Male

DRUGS (1)
  1. ERBITUX [Suspect]
     Indication: COLON CANCER
     Dosage: MOST RECNT DOSE ON 14APR2011.STRENGTH:5MG/ML
     Route: 041
     Dates: start: 20101111, end: 20110414

REACTIONS (2)
  - DUODENAL ULCER [None]
  - ANAEMIA [None]
